FAERS Safety Report 10264305 (Version 1)
Quarter: 2014Q2

REPORT INFORMATION
  Report Type: Spontaneous
  Country: CA (occurrence: CA)
  Receive Date: 20140627
  Receipt Date: 20140627
  Transmission Date: 20141212
  Serious: Yes (Other)
  Sender: FDA-Public Use
  Company Number: CA-ROCHE-1425698

PATIENT
  Age: 58 Year
  Sex: Male
  Weight: 98 kg

DRUGS (4)
  1. ACTEMRA [Suspect]
     Indication: RHEUMATOID ARTHRITIS
     Route: 042
     Dates: start: 20100819
  2. TYLENOL ARTHRITIS [Concomitant]
     Indication: RHEUMATOID ARTHRITIS
     Route: 048
     Dates: start: 200911
  3. METHOTREXATE [Concomitant]
     Indication: RHEUMATOID ARTHRITIS
     Route: 058
     Dates: start: 20140116
  4. FOLIC ACID [Concomitant]
     Route: 048
     Dates: start: 200911

REACTIONS (1)
  - Transitional cell carcinoma [Recovered/Resolved]
